FAERS Safety Report 6577518-9 (Version None)
Quarter: 2010Q1

REPORT INFORMATION
  Report Type: 
  Country: None (occurrence: None)
  Receive Date: 20100211
  Receipt Date: 20100208
  Transmission Date: 20100710
  Serious: Yes (Other)
  Sender: FDA-Public Use
  Company Number: US-MYLANLABS-2010S1001528

PATIENT
  Age: 24 Year
  Sex: Female
  Weight: 108.41 kg

DRUGS (14)
  1. PHENYTOIN SODIUM [Suspect]
     Route: 048
  2. PHENYTOIN SODIUM [Suspect]
     Route: 048
     Dates: end: 20100101
  3. PRIMIDONE [Concomitant]
     Route: 048
     Dates: start: 20091215
  4. DILANTIN [Concomitant]
     Route: 048
     Dates: start: 20100112
  5. CLINDAMYCIN [Concomitant]
     Dosage: PRIOR TO DENTAL APPOINTMENT
     Route: 048
     Dates: start: 20100114
  6. RANITIDINE [Concomitant]
     Route: 048
     Dates: start: 20100114
  7. LORAZEPAM [Concomitant]
     Indication: AGITATION
     Dosage: PRN
     Route: 030
     Dates: start: 20100113
  8. LORATADINE [Concomitant]
     Indication: HYPERSENSITIVITY
     Route: 048
     Dates: start: 20100117
  9. TUSSIONEX /00004701/ [Concomitant]
     Route: 048
     Dates: start: 20100119
  10. AMPHETAMINE SULFATE [Concomitant]
     Indication: ATTENTION DEFICIT/HYPERACTIVITY DISORDER
     Route: 048
     Dates: start: 20100121
  11. LORAZEPAM [Concomitant]
     Dosage: PRN
     Route: 048
     Dates: start: 20100113
  12. DIPHENHYDRAMINE [Concomitant]
     Indication: PRURITUS
     Dosage: PRN
     Route: 048
     Dates: start: 20100117
  13. HYDROCODONE BITARTRATE AND ACETAMINOPHEN [Concomitant]
     Indication: PAIN
     Dosage: PRN
     Route: 048
     Dates: start: 20100119
  14. APAP W/ CODEINE [Concomitant]
     Indication: PAIN
     Dosage: PRN
     Route: 048
     Dates: start: 20100118

REACTIONS (2)
  - ANTICONVULSANT DRUG LEVEL DECREASED [None]
  - DRUG INEFFECTIVE [None]
